FAERS Safety Report 5648948-4 (Version None)
Quarter: 2008Q1

REPORT INFORMATION
  Report Type: 
  Country: None (occurrence: None)
  Receive Date: 20080303
  Receipt Date: 20080303
  Transmission Date: 20080703
  Serious: Yes (Other)
  Sender: FDA-Public Use
  Company Number: None

PATIENT
  Age: 36 Year
  Sex: Female
  Weight: 53 kg

DRUGS (7)
  1. LINEZOLID [Suspect]
     Indication: DRUG RESISTANCE
     Dosage: 600MG  Q12  IV
     Route: 042
     Dates: start: 20080225, end: 20080302
  2. CITALOPRAM  20MG   CORE PHARMA [Suspect]
     Indication: DEPRESSION
     Dosage: 20MG  ONCE DAILY  PO
     Route: 048
     Dates: start: 20080214, end: 20080229
  3. LOVENOX [Concomitant]
  4. NEXIUM [Concomitant]
  5. DURAGESIC-100 [Concomitant]
  6. IMIPENEM [Concomitant]
  7. INSULIN [Concomitant]

REACTIONS (3)
  - CONVULSION [None]
  - SEROTONIN SYNDROME [None]
  - TREMOR [None]
